FAERS Safety Report 6631530-X (Version None)
Quarter: 2010Q2

REPORT INFORMATION
  Report Type: 
  Country: None (occurrence: None)
  Receive Date: 20100312
  Receipt Date: 20100302
  Transmission Date: 20101027
  Serious: Yes (Other)
  Sender: FDA-Public Use
  Company Number: PHHY2010BR01545

PATIENT
  Sex: Female

DRUGS (3)
  1. EXFORGE [Suspect]
     Indication: HYPERTENSION
     Dosage: ONE TABLET (160/5 MG) DAILY
     Route: 065
     Dates: start: 20091101, end: 20100201
  2. PROPRANOLOL HYDROCHLORIDE [Concomitant]
     Indication: ARRHYTHMIA
     Dosage: ONE TABLET DAILY
     Route: 048
  3. RIVOTRIL [Concomitant]
     Indication: SLEEP DISORDER
     Dosage: 1 TABLET DAILY
     Route: 048

REACTIONS (1)
  - OEDEMA PERIPHERAL [None]
